FAERS Safety Report 12360617 (Version 2)
Quarter: 2019Q3

REPORT INFORMATION
  Report Type: Spontaneous
  Country: RU (occurrence: RU)
  Receive Date: 20160512
  Receipt Date: 20190722
  Transmission Date: 20191004
  Serious: Yes (Hospitalization, Other)
  Sender: FDA-Public Use
  Company Number: RU-BRISTOL-MYERS SQUIBB COMPANY-BMS-2016-036341

PATIENT
  Age: 69 Year
  Sex: Male

DRUGS (1)
  1. METFORMIN HYDROCHLORIDE. [Suspect]
     Active Substance: METFORMIN HYDROCHLORIDE
     Indication: TYPE 2 DIABETES MELLITUS
     Dosage: 850 MG, BID
     Route: 065

REACTIONS (4)
  - Supraventricular tachycardia [Unknown]
  - Hyperglycaemia [Unknown]
  - Acute myocardial infarction [Unknown]
  - Glycosylated haemoglobin increased [Unknown]
